FAERS Safety Report 6831404-5 (Version None)
Quarter: 2010Q2

REPORT INFORMATION
  Report Type: 
  Country: None (occurrence: None)
  Receive Date: 20100520
  Receipt Date: 20090604
  Transmission Date: 20101027
  Serious: Yes (Other)
  Sender: FDA-Public Use
  Company Number: 2009223903

PATIENT
  Age: 65 Year
  Sex: Female
  Weight: 47 kg

DRUGS (9)
  1. PROVERA [Suspect]
     Indication: MENOPAUSAL SYMPTOMS
     Dosage: 5 MG, ORAL
     Route: 048
     Dates: end: 19960101
  2. PREMARIN [Suspect]
     Indication: MENOPAUSAL SYMPTOMS
     Dosage: 0.625 MG
     Dates: end: 19960101
  3. PREMPRO [Suspect]
     Indication: MENOPAUSAL SYMPTOMS
     Dosage: 2.5/0.625 MG
     Dates: start: 19960101, end: 20000616
  4. PREVACID [Concomitant]
  5. RANITIDINE [Concomitant]
  6. TOPROL-XL [Concomitant]
  7. NITROGLYCERIN [Concomitant]
  8. PRINIVIL [Concomitant]
  9. SYNTHROID [Concomitant]

REACTIONS (1)
  - BREAST CANCER [None]
